FAERS Safety Report 6211689-9 (Version None)
Quarter: 2009Q2

REPORT INFORMATION
  Report Type: 
  Country: None (occurrence: None)
  Receive Date: 20090602
  Receipt Date: 20090527
  Transmission Date: 20091009
  Serious: Yes (Other)
  Sender: FDA-Public Use
  Company Number: B0573560A

PATIENT
  Sex: Male
  Weight: 32 kg

DRUGS (2)
  1. RELENZA [Suspect]
     Indication: INFLUENZA
     Dosage: 10MG TWICE PER DAY
     Route: 055
     Dates: start: 20090414
  2. CALONAL [Concomitant]
     Dates: start: 20090415

REACTIONS (2)
  - ABNORMAL BEHAVIOUR [None]
  - INCOHERENT [None]
